FAERS Safety Report 15599007 (Version 1)
Quarter: 2018Q4

REPORT INFORMATION
  Report Type: Report from Study
  Country: DE (occurrence: DE)
  Receive Date: 20181108
  Receipt Date: 20181108
  Transmission Date: 20190205
  Serious: Yes (Other)
  Sender: FDA-Public Use
  Company Number: DE-GILEAD-2015-0142892

PATIENT
  Age: 68 Year
  Sex: Male
  Weight: 68 kg

DRUGS (14)
  1. RIBAVIRIN. [Suspect]
     Active Substance: RIBAVIRIN
     Indication: CHRONIC HEPATITIS C
     Dosage: 1000 MG, QD
     Route: 048
     Dates: start: 20150108, end: 20150406
  2. NEBIVOLOL. [Concomitant]
     Active Substance: NEBIVOLOL
  3. NEVIRAPINE. [Concomitant]
     Active Substance: NEVIRAPINE
  4. EXFORGE [Concomitant]
     Active Substance: AMLODIPINE BESYLATE\VALSARTAN
  5. RILPIVIRINE [Concomitant]
     Active Substance: RILPIVIRINE
  6. BISOPROLOL [Concomitant]
     Active Substance: BISOPROLOL
  7. DEKRISTOL [Concomitant]
     Active Substance: CHOLECALCIFEROL
  8. PRAVASTATIN. [Concomitant]
     Active Substance: PRAVASTATIN
  9. ALLOPURINOL. [Concomitant]
     Active Substance: ALLOPURINOL
  10. LAMIVUDIN AUROBINDO [Concomitant]
  11. LEDIPASVIR/SOFOSBUVIR [Suspect]
     Active Substance: LEDIPASVIR\SOFOSBUVIR
     Indication: CHRONIC HEPATITIS C
     Dosage: 1 DF, QD
     Route: 048
     Dates: start: 20150108, end: 20150401
  12. ABACAVIR. [Concomitant]
     Active Substance: ABACAVIR
  13. MOXONIDIN [Concomitant]
     Active Substance: MOXONIDINE
  14. METFORMIN AUROBINDO [Concomitant]
     Active Substance: METFORMIN HYDROCHLORIDE

REACTIONS (4)
  - Depression [Recovering/Resolving]
  - Nausea [Recovered/Resolved]
  - Pancreatic failure [Unknown]
  - Anaemia [Unknown]

NARRATIVE: CASE EVENT DATE: 20150203
